FAERS Safety Report 9081081 (Version 1)
Quarter: 2013Q1

REPORT INFORMATION
  Report Type: Report from Study
  Country: US (occurrence: US)
  Receive Date: 20130130
  Receipt Date: 20130130
  Transmission Date: 20140127
  Serious: No
  Sender: FDA-Public Use
  Company Number: US-ABBOTT-12P-163-0975817-00

PATIENT
  Age: 59 Year
  Sex: Female

DRUGS (23)
  1. HUMIRA [Suspect]
     Indication: IRRITABLE BOWEL SYNDROME
     Dates: start: 20111205
  2. BYETTA [Suspect]
     Indication: DIABETES MELLITUS
     Dosage: 2 MG QD
  3. LOVAZA [Concomitant]
     Indication: PRODUCT USED FOR UNKNOWN INDICATION
  4. APRISO [Concomitant]
     Indication: PRODUCT USED FOR UNKNOWN INDICATION
  5. PREMARIN [Concomitant]
     Indication: PRODUCT USED FOR UNKNOWN INDICATION
     Dosage: 3 X WEEK
  6. COREG [Concomitant]
     Indication: PRODUCT USED FOR UNKNOWN INDICATION
  7. PRIMIDONE [Concomitant]
     Indication: PRODUCT USED FOR UNKNOWN INDICATION
  8. SYNTHROID [Concomitant]
     Indication: PRODUCT USED FOR UNKNOWN INDICATION
  9. PREDNISONE [Concomitant]
     Indication: PRODUCT USED FOR UNKNOWN INDICATION
  10. T3 SR [Concomitant]
     Dosage: QD
  11. ZOLOFT [Concomitant]
     Indication: PRODUCT USED FOR UNKNOWN INDICATION
  12. BENICAR [Concomitant]
     Indication: BLOOD PRESSURE
     Dosage: 40/25
  13. ZOFRAN [Concomitant]
     Indication: PRODUCT USED FOR UNKNOWN INDICATION
  14. CLONAZEPAM [Concomitant]
     Indication: PRODUCT USED FOR UNKNOWN INDICATION
  15. ZANAFLEX [Concomitant]
     Indication: PRODUCT USED FOR UNKNOWN INDICATION
     Dosage: AT BEDTIME
  16. PROMETHAZINE [Concomitant]
     Indication: PRODUCT USED FOR UNKNOWN INDICATION
     Dosage: 2-3 QD
  17. ADDERALL [Concomitant]
     Indication: PRODUCT USED FOR UNKNOWN INDICATION
     Dosage: UNLESS INDICATED
  18. ACYCLOVIR [Concomitant]
     Indication: PRODUCT USED FOR UNKNOWN INDICATION
     Dosage: QD
  19. LANTUS [Concomitant]
     Indication: DIABETES MELLITUS
     Dosage: 60U BID
  20. LANTUS [Concomitant]
     Dosage: 30 U BID
  21. NOVALOG [Concomitant]
     Indication: DIABETES MELLITUS
     Dosage: 12 U WITH MEALS AND PRN
  22. NOVALOG [Concomitant]
     Dosage: 6 U WITH MEALS AND PRN
  23. HCG [Concomitant]
     Dosage: STUDY DRUG 22 UNITS SQ QD
     Route: 058

REACTIONS (1)
  - Drug ineffective [Not Recovered/Not Resolved]
